FAERS Safety Report 20868192 (Version 1)
Quarter: 2022Q2

REPORT INFORMATION
  Report Type: Report from Study
  Country: EG (occurrence: EG)
  Receive Date: 20220524
  Receipt Date: 20220524
  Transmission Date: 20220721
  Serious: Yes (Other)
  Sender: FDA-Public Use
  Company Number: EG-NOVARTISPH-NVSC2022EG118414

PATIENT
  Age: 52 Year
  Sex: Female

DRUGS (5)
  1. KISQALI [Suspect]
     Active Substance: RIBOCICLIB
     Indication: Breast cancer metastatic
     Dosage: 3 DOSAGE FORM, 21D (THEN FREE WEEK (FOR 4 CYCLES))
     Route: 048
     Dates: start: 202009, end: 20220326
  2. KISQALI [Suspect]
     Active Substance: RIBOCICLIB
     Indication: Metastases to lymph nodes
     Dosage: 2 DOSAGE FORM ((FOR 2 CYCLES))
     Route: 048
     Dates: start: 202102, end: 20211201
  3. KISQALI [Suspect]
     Active Substance: RIBOCICLIB
     Dosage: 1 DOSAGE FORM ((5-6 CYCLES))
     Route: 048
     Dates: start: 202112, end: 20220326
  4. BISOPROLOL FUMARATE [Concomitant]
     Active Substance: BISOPROLOL FUMARATE
     Indication: Hypertension
     Dosage: 1 DOSAGE FORM (IN THE MORNING)
     Route: 065
     Dates: start: 202009
  5. CALCIUM [Concomitant]
     Active Substance: CALCIUM
     Indication: Anaemia
     Dosage: 2 DOSAGE FORM, QD ((ONE TABLET AT MORNING AND THE OTHER)
     Route: 065
     Dates: start: 202008

REACTIONS (5)
  - Metastases to lymph nodes [Recovered/Resolved]
  - Diabetes mellitus [Recovering/Resolving]
  - Anaemia [Recovering/Resolving]
  - Arthralgia [Not Recovered/Not Resolved]
  - Off label use [Recovered/Resolved]

NARRATIVE: CASE EVENT DATE: 20210201
